FAERS Safety Report 8806700 (Version 1)
Quarter: 2012Q4

REPORT INFORMATION
  Report Type: Spontaneous
  Country: DE (occurrence: None)
  Receive Date: 20120919
  Receipt Date: 20120919
  Transmission Date: 20130627
  Serious: Yes (Death, Hospitalization)
  Sender: FDA-Public Use
  Company Number: GER/GER/12/0025889

PATIENT
  Age: 66 Year
  Sex: Female
  Weight: 77 kg

DRUGS (1)
  1. METFORMIN [Suspect]
     Route: 048

REACTIONS (4)
  - Lactic acidosis [None]
  - Staphylococcal sepsis [None]
  - Renal failure acute [None]
  - Haemodialysis [None]
